FAERS Safety Report 8966483 (Version 2)
Quarter: 2013Q2

REPORT INFORMATION
  Report Type: Spontaneous
  Country: US (occurrence: US)
  Receive Date: 20121216
  Receipt Date: 20130409
  Transmission Date: 20140414
  Serious: Yes (Hospitalization, Other)
  Sender: FDA-Public Use
  Company Number: US-ALEXION-A201202363

PATIENT
  Age: 43 Year
  Sex: Female

DRUGS (1)
  1. SOLIRIS 300MG [Suspect]
     Indication: PAROXYSMAL NOCTURNAL HAEMOGLOBINURIA
     Dosage: UNK
     Route: 042

REACTIONS (4)
  - Pneumonia pseudomonas aeruginosa [Unknown]
  - Pseudomonal bacteraemia [Recovered/Resolved]
  - Cholecystitis acute [Recovered/Resolved]
  - Procedural complication [Unknown]
